FAERS Safety Report 5739638-8 (Version None)
Quarter: 2008Q2

REPORT INFORMATION
  Report Type: 
  Country: None (occurrence: None)
  Receive Date: 20080515
  Receipt Date: 20080507
  Transmission Date: 20081010
  Serious: Yes (Other)
  Sender: FDA-Public Use
  Company Number: TR-GENENTECH-260741

PATIENT
  Sex: Female

DRUGS (8)
  1. PULMOZYME [Suspect]
     Indication: LUNG DISORDER
     Dosage: 1.25 MG, UNKNOWN
     Route: 055
  2. PULMONARY SURFACTANT NOS [Concomitant]
     Indication: NEONATAL RESPIRATORY DISTRESS SYNDROME
  3. AMPICILLIN [Concomitant]
     Indication: SEPSIS
  4. AMIKACIN [Concomitant]
     Indication: SEPSIS
  5. INDOMETHACIN [Concomitant]
     Indication: PATENT DUCTUS ARTERIOSUS
  6. DIGITALIS TAB [Concomitant]
     Indication: TACHYCARDIA
  7. DOPAMINE HCL [Concomitant]
     Indication: HYPOTENSION
  8. ANTIBIOTIC (UNK INGREDIENTS) [Concomitant]
     Indication: PNEUMONIA KLEBSIELLA

REACTIONS (1)
  - PULMONARY HAEMORRHAGE [None]
